FAERS Safety Report 6906865-3 (Version None)
Quarter: 2010Q3

REPORT INFORMATION
  Report Type: 
  Country: None (occurrence: None)
  Receive Date: 20100804
  Receipt Date: 20100305
  Transmission Date: 20110219
  Serious: Yes (Death)
  Sender: FDA-Public Use
  Company Number: PHHY2009TW36892

PATIENT
  Age: 66 Year
  Sex: Female

DRUGS (1)
  1. ACLASTA [Suspect]
     Indication: OSTEOPOROSIS POSTMENOPAUSAL
     Dosage: 5 MG/100ML ONCE AYEAR
     Route: 042
     Dates: start: 20090820

REACTIONS (4)
  - FALL [None]
  - HEAD INJURY [None]
  - HEPATIC NEOPLASM MALIGNANT [None]
  - LIMB INJURY [None]
